FAERS Safety Report 9408887 (Version 3)
Quarter: 2013Q4

REPORT INFORMATION
  Report Type: Report from Study
  Country: DE (occurrence: DE)
  Receive Date: 20130719
  Receipt Date: 20131028
  Transmission Date: 20140711
  Serious: Yes (Hospitalization)
  Sender: FDA-Public Use
  Company Number: DE-PFIZER INC-2011305100

PATIENT
  Age: 42 Year
  Sex: Male
  Weight: 101 kg

DRUGS (3)
  1. PLACEBO [Suspect]
     Indication: PSORIASIS
     Dosage: TWICE DAILY
     Route: 048
     Dates: start: 20111130, end: 20111213
  2. ETANERCEPT [Suspect]
     Indication: PSORIASIS
     Dosage: 50 MG, 2X/WEEK
     Route: 058
     Dates: start: 20111130, end: 20111210
  3. RAMIPRIL [Concomitant]
     Indication: HYPERTENSION
     Dosage: 5 MG, 1X/DAY
     Route: 048
     Dates: start: 20110926

REACTIONS (1)
  - Erythrodermic psoriasis [Recovered/Resolved]
